FAERS Safety Report 23738351 (Version 5)
Quarter: 2025Q1

REPORT INFORMATION
  Report Type: Spontaneous
  Country: US (occurrence: US)
  Receive Date: 20240412
  Receipt Date: 20250224
  Transmission Date: 20250408
  Serious: No
  Sender: KARYOPHARM THERAPEUTICS
  Company Number: US-KARYOPHARM-2024KPT000858

PATIENT

DRUGS (28)
  1. XPOVIO [Suspect]
     Active Substance: SELINEXOR
     Indication: Plasma cell myeloma
     Dosage: 40 MG, WEEKLY
     Route: 048
     Dates: start: 20230828
  2. XPOVIO [Suspect]
     Active Substance: SELINEXOR
     Dosage: 40 MG, WEEKLY
     Route: 048
     Dates: start: 2024
  3. FLAREX [Concomitant]
     Active Substance: FLUOROMETHOLONE ACETATE
  4. CINVANTI [Concomitant]
     Active Substance: APREPITANT
  5. PROCHLORPERAZINE [Concomitant]
     Active Substance: PROCHLORPERAZINE
  6. ZYPREXA [Concomitant]
     Active Substance: OLANZAPINE
  7. EMEND [Concomitant]
     Active Substance: APREPITANT
  8. AMLODIPINE [Concomitant]
     Active Substance: AMLODIPINE BESYLATE
  9. ATROVENT [Concomitant]
     Active Substance: IPRATROPIUM BROMIDE
  10. BUTALBITAL [Concomitant]
     Active Substance: BUTALBITAL
  11. BETAMETHASONE\CLOTRIMAZOLE [Concomitant]
     Active Substance: BETAMETHASONE\CLOTRIMAZOLE
  12. COMBIVENT [Concomitant]
     Active Substance: ALBUTEROL SULFATE\IPRATROPIUM BROMIDE
  13. CYCLOBENZAPRINE [Concomitant]
     Active Substance: CYCLOBENZAPRINE
  14. DICYCLOMINE HYDROCHLORIDE [Concomitant]
     Active Substance: DICYCLOMINE HYDROCHLORIDE
  15. GEMFIBROZIL [Concomitant]
     Active Substance: GEMFIBROZIL
  16. ACETAMINOPHEN\HYDROCODONE [Concomitant]
     Active Substance: ACETAMINOPHEN\HYDROCODONE
  17. LIDOCAINE AND PRILOCAINE [Concomitant]
     Active Substance: LIDOCAINE\PRILOCAINE
  18. METOPROLOL SUCCINATE [Concomitant]
     Active Substance: METOPROLOL SUCCINATE
  19. MONTELUKAST [Concomitant]
     Active Substance: MONTELUKAST
  20. ONDANSETRON [Concomitant]
     Active Substance: ONDANSETRON
  21. PREDNISONE [Concomitant]
     Active Substance: PREDNISONE
  22. PRIVIGEN [Concomitant]
     Active Substance: HUMAN IMMUNOGLOBULIN G
  23. RESTASIS [Concomitant]
     Active Substance: CYCLOSPORINE
  24. SEVELAMER [Concomitant]
     Active Substance: SEVELAMER
  25. FEXOFENADINE [Concomitant]
     Active Substance: FEXOFENADINE HYDROCHLORIDE
  26. SUMATRIPTAN [Concomitant]
     Active Substance: SUMATRIPTAN
  27. TOPIRAMATE [Concomitant]
     Active Substance: TOPIRAMATE
  28. VALACYCLOVIR [Concomitant]
     Active Substance: VALACYCLOVIR HYDROCHLORIDE

REACTIONS (5)
  - Gastroenteritis viral [Unknown]
  - Platelet count decreased [Unknown]
  - Fatigue [Unknown]
  - Intentional dose omission [Unknown]
  - Inappropriate schedule of product administration [Unknown]

NARRATIVE: CASE EVENT DATE: 20240101
